FAERS Safety Report 19106826 (Version 3)
Quarter: 2021Q2

REPORT INFORMATION
  Report Type: Report from Study
  Country: US (occurrence: US)
  Receive Date: 20210408
  Receipt Date: 20210504
  Transmission Date: 20210717
  Serious: No
  Sender: FDA-Public Use
  Company Number: NVSC2021US072515

PATIENT
  Sex: Male

DRUGS (1)
  1. KESIMPTA [Suspect]
     Active Substance: OFATUMUMAB
     Indication: PRODUCT USED FOR UNKNOWN INDICATION
     Dosage: UNK
     Route: 065

REACTIONS (6)
  - Lethargy [Unknown]
  - Chills [Recovered/Resolved]
  - Incorrect dose administered [Unknown]
  - Influenza like illness [Recovered/Resolved]
  - SARS-CoV-2 test positive [Unknown]
  - Fatigue [Recovered/Resolved]
